FAERS Safety Report 6413243-2 (Version None)
Quarter: 2009Q4

REPORT INFORMATION
  Report Type: 
  Country: None (occurrence: None)
  Receive Date: 20091026
  Receipt Date: 20091021
  Transmission Date: 20100525
  Serious: Yes (Death, Hospitalization)
  Sender: FDA-Public Use
  Company Number: JP-BAYER-200913641BYL

PATIENT
  Age: 80 Year
  Sex: Male
  Weight: 48 kg

DRUGS (2)
  1. NEXAVAR [Suspect]
     Indication: HEPATIC NEOPLASM MALIGNANT
     Dosage: TOTAL DAILY DOSE: 800 MG  UNIT DOSE: 200 MG
     Route: 048
     Dates: start: 20090626, end: 20090917
  2. KERATINAMIN [Concomitant]
     Indication: PROPHYLAXIS
     Route: 061
     Dates: start: 20090715

REACTIONS (4)
  - ASCITES [None]
  - DECREASED APPETITE [None]
  - DIARRHOEA [None]
  - HEPATIC NEOPLASM MALIGNANT [None]
